FAERS Safety Report 18400769 (Version 2)
Quarter: 2020Q4

REPORT INFORMATION
  Report Type: Spontaneous
  Country: CN (occurrence: CN)
  Receive Date: 20201019
  Receipt Date: 20201023
  Transmission Date: 20210114
  Serious: Yes (Death)
  Sender: FDA-Public Use
  Company Number: CN-ASTRAZENECA-2020SF35342

PATIENT
  Age: 49 Year
  Sex: Male
  Weight: 50 kg

DRUGS (3)
  1. IMFINZI [Suspect]
     Active Substance: DURVALUMAB
     Indication: NON-SMALL CELL LUNG CANCER STAGE III
     Dosage: 500MG / CYCLE (500ML / 10ML ) ONCE EVERY 21 DAY
     Route: 042
     Dates: start: 20200613
  2. IMFINZI [Suspect]
     Active Substance: DURVALUMAB
     Indication: NON-SMALL CELL LUNG CANCER STAGE III
     Dosage: ONCE EVERY 21 DAY
     Route: 042
     Dates: start: 20200520
  3. PLATINUM-BASED CHEMOTHERAPY [Concomitant]
     Active Substance: UNSPECIFIED INGREDIENT

REACTIONS (5)
  - Malignant neoplasm progression [Fatal]
  - Feeling abnormal [Fatal]
  - Weight decreased [Fatal]
  - Decreased appetite [Fatal]
  - Biliary obstruction [Fatal]
